FAERS Safety Report 15165191 (Version 1)
Quarter: 2018Q3

REPORT INFORMATION
  Report Type: Spontaneous
  Country: US (occurrence: US)
  Receive Date: 20180621
  Receipt Date: 20180621
  Transmission Date: 20181010
  Serious: No
  Sender: FDA-Public Use
  Company Number: None

PATIENT
  Age: 33 Year
  Sex: Female

DRUGS (1)
  1. MAKENA [Suspect]
     Active Substance: HYDROXYPROGESTERONE CAPROATE
     Indication: POSTPONEMENT OF PRETERM DELIVERY
     Route: 058
     Dates: start: 20180501, end: 20180525

REACTIONS (3)
  - Pruritus [None]
  - Erythema [None]
  - Device issue [None]

NARRATIVE: CASE EVENT DATE: 20180501
